FAERS Safety Report 6257320-8 (Version None)
Quarter: 2009Q3

REPORT INFORMATION
  Report Type: 
  Country: None (occurrence: None)
  Receive Date: 20090701
  Receipt Date: 20090701
  Transmission Date: 20100115
  Serious: Yes (Other)
  Sender: FDA-Public Use
  Company Number: None

PATIENT
  Sex: Male
  Weight: 16.3295 kg

DRUGS (2)
  1. SINGULAIR [Suspect]
     Indication: COUGH
     Dosage: 4MG 1 IN EVENING PO
     Route: 048
     Dates: start: 20090626, end: 20090629
  2. SINGULAIR [Suspect]
     Indication: POSTNASAL DRIP
     Dosage: 4MG 1 IN EVENING PO
     Route: 048
     Dates: start: 20090626, end: 20090629

REACTIONS (3)
  - ABNORMAL BEHAVIOUR [None]
  - AGGRESSION [None]
  - MOOD SWINGS [None]
